FAERS Safety Report 9678118 (Version 2)
Quarter: 2013Q4

REPORT INFORMATION
  Report Type: Report from Study
  Country: JP (occurrence: JP)
  Receive Date: 20131108
  Receipt Date: 20131108
  Transmission Date: 20140711
  Serious: Yes (Hospitalization)
  Sender: FDA-Public Use
  Company Number: JP-VERTEX PHARMACEUTICALS INC-AE-2012-004844

PATIENT
  Age: 49 Year
  Sex: Male

DRUGS (11)
  1. VX-950 (TELAPREVIR) [Suspect]
     Indication: CHRONIC HEPATITIS C
     Dosage: 2250 MG, QD
     Route: 048
     Dates: start: 20120206, end: 20120502
  2. REBETOL [Suspect]
     Dosage: 800 MG, QD
     Route: 048
     Dates: start: 20120206, end: 20120725
  3. PEGINTRON [Suspect]
     Dosage: 1.43 ?G/KG, QW
     Route: 058
     Dates: start: 20120206, end: 20120719
  4. PROMAC [Concomitant]
     Dosage: 150 MG, QD
     Route: 048
     Dates: start: 20120206
  5. FAMOGAST D/OTHER THERAPEUTIC PRODUCTS [Concomitant]
     Dosage: 40 MG, QD
     Route: 048
     Dates: start: 20120216
  6. AZULOXA [Concomitant]
     Dosage: 30 MG, QD
     Route: 048
     Dates: start: 20120216
  7. ALESION [Concomitant]
     Dosage: 40 MG, QD PRN
  8. ALESION [Concomitant]
     Dosage: 40 MG, QD
     Route: 048
  9. ALESION [Concomitant]
     Dosage: 10 MG, QD
     Route: 048
  10. PREDONINE [Concomitant]
     Dosage: 10 MG, QD
     Route: 048
  11. PREDONINE [Concomitant]
     Dosage: 5 MG, QD
     Route: 048

REACTIONS (1)
  - Erythema [Recovered/Resolved]
